FAERS Safety Report 23769053 (Version 3)
Quarter: 2024Q2

REPORT INFORMATION
  Report Type: Spontaneous
  Country: TR (occurrence: TR)
  Receive Date: 20240422
  Receipt Date: 20240430
  Transmission Date: 20240716
  Serious: Yes (Hospitalization, Other)
  Sender: FDA-Public Use
  Company Number: None

PATIENT
  Age: 18 Year
  Sex: Female
  Weight: 50 kg

DRUGS (5)
  1. ASPERCREME LIDOCAINE NO-MESS PLUS LAVENDER [Suspect]
     Active Substance: LIDOCAINE HYDROCHLORIDE
     Indication: Local anaesthesia
     Dosage: 20 MG/ML
  2. ASPERCREME LIDOCAINE NO-MESS PLUS LAVENDER [Suspect]
     Active Substance: LIDOCAINE HYDROCHLORIDE
     Dosage: 48 MG VIA INJECTION, FOUR MILLILITERS OF THE PREPARED MIXTURE
  3. EPINEPHRINE [Suspect]
     Active Substance: EPINEPHRINE
     Indication: Local anaesthesia
     Dosage: 0.0125 MG/ML WAS PREPARED BY DILUTING IT TO 10 ML FOR INFILTRATION ANESTHESIA
     Route: 065
  4. EPINEPHRINE [Suspect]
     Active Substance: EPINEPHRINE
     Dosage: 0.03 MG VIA SUBMUCOSAL INJECTION,?FOUR MILLILITERS OF THE PREPARED MIXTURE 0.03 MG EPINEPHRINE)
     Route: 065
  5. EPHEDRINE HYDROCHLORIDE [Suspect]
     Active Substance: EPHEDRINE HYDROCHLORIDE
     Indication: Positive cardiac inotropic effect
     Dosage: 5 MG, SLOWLY INJECTED
     Route: 042

REACTIONS (5)
  - Stress cardiomyopathy [Recovered/Resolved]
  - Circulatory collapse [Recovered/Resolved]
  - Sinus tachycardia [Recovered/Resolved]
  - Ventricular tachycardia [Recovered/Resolved]
  - Tricuspid valve incompetence [Recovered/Resolved]
